FAERS Safety Report 19258024 (Version 1)
Quarter: 2021Q2

REPORT INFORMATION
  Report Type: Spontaneous
  Country: US (occurrence: US)
  Receive Date: 20210514
  Receipt Date: 20210514
  Transmission Date: 20210717
  Serious: No
  Sender: FDA-Public Use
  Company Number: None

PATIENT
  Age: 74 Year
  Sex: Male
  Weight: 96 kg

DRUGS (5)
  1. DOFETILIDE (DOFETILIDE 500MCG CAP) [Suspect]
     Active Substance: DOFETILIDE
     Indication: RHEUMATOID ARTHRITIS
     Route: 048
     Dates: start: 20200508
  2. HYDROXYCHLOROQUINE (HYDROXYCHLOROQUINE SO4 200MG TAB) [Suspect]
     Active Substance: HYDROXYCHLOROQUINE SULFATE
     Indication: ATRIAL FIBRILLATION
     Route: 048
     Dates: start: 20201109
  3. HYDROXYCHLOROQUINE (HYDROXYCHLOROQUINE SO4 200MG TAB) [Suspect]
     Active Substance: HYDROXYCHLOROQUINE SULFATE
     Indication: RHEUMATOID ARTHRITIS
     Route: 048
     Dates: start: 20201109
  4. HYDROXYCHLOROQUINE (HYDROXYCHLOROQUINE SO4 200MG TAB) [Suspect]
     Active Substance: HYDROXYCHLOROQUINE SULFATE
     Indication: CARDIAC FAILURE CONGESTIVE
     Route: 048
     Dates: start: 20201109
  5. DOFETILIDE (DOFETILIDE 500MCG CAP) [Suspect]
     Active Substance: DOFETILIDE
     Indication: PAIN
     Route: 048
     Dates: start: 20200508

REACTIONS (1)
  - Atrial fibrillation [None]

NARRATIVE: CASE EVENT DATE: 20210511
